FAERS Safety Report 8422231-6 (Version None)
Quarter: 2012Q2

REPORT INFORMATION
  Report Type: 
  Country: None (occurrence: None)
  Receive Date: 20120608
  Receipt Date: 20120531
  Transmission Date: 20120825
  Serious: Yes (Other)
  Sender: FDA-Public Use
  Company Number: BR-AMGEN-BRASP2012035247

PATIENT
  Age: 65 Year
  Sex: Female
  Weight: 72 kg

DRUGS (6)
  1. OMEPRAZOLE [Concomitant]
     Dosage: UNK
  2. ARAVA [Concomitant]
     Dosage: UNK
  3. PREDNISONE TAB [Concomitant]
     Dosage: UNK
  4. ENBREL [Suspect]
     Indication: RHEUMATOID ARTHRITIS
     Dosage: 25 MG, 2X/WEEK
     Route: 058
     Dates: start: 20110317, end: 20120301
  5. ATENOLOL [Concomitant]
     Dosage: UNK
  6. HUMIRA [Concomitant]
     Dosage: UNK

REACTIONS (4)
  - ARTHROPATHY [None]
  - FATIGUE [None]
  - JOINT SWELLING [None]
  - ARTHRALGIA [None]
